FAERS Safety Report 5601044-4 (Version None)
Quarter: 2008Q1

REPORT INFORMATION
  Report Type: 
  Country: None (occurrence: None)
  Receive Date: 20080124
  Receipt Date: 20080116
  Transmission Date: 20080703
  Serious: Yes (Hospitalization, Disabling, Other)
  Sender: FDA-Public Use
  Company Number: US-ROCHE-482163

PATIENT
  Age: 16 Year
  Sex: Female

DRUGS (1)
  1. ACCUTANE [Suspect]
     Indication: ACNE
     Route: 048
     Dates: start: 19990107, end: 19990401

REACTIONS (35)
  - AMNESIA [None]
  - ANAEMIA [None]
  - APHTHOUS STOMATITIS [None]
  - CARDIAC FAILURE CONGESTIVE [None]
  - CHEST PAIN [None]
  - DEPRESSION [None]
  - DERMATITIS BULLOUS [None]
  - DISSEMINATED INTRAVASCULAR COAGULATION [None]
  - EXTREMITY NECROSIS [None]
  - GRANULOCYTOPENIA [None]
  - HYPOCOMPLEMENTAEMIA [None]
  - HYPOMAGNESAEMIA [None]
  - INFARCTION [None]
  - INSOMNIA [None]
  - LEUKOCYTOSIS [None]
  - LUNG INFILTRATION [None]
  - MENINGITIS [None]
  - MENINGOCOCCAL BACTERAEMIA [None]
  - MIGRAINE [None]
  - MITRAL VALVE INCOMPETENCE [None]
  - MITRAL VALVE PROLAPSE [None]
  - PERIRECTAL ABSCESS [None]
  - PROTEINURIA [None]
  - PULMONARY HYPERTENSION [None]
  - RASH [None]
  - RECTAL FISSURE [None]
  - RECTAL HAEMORRHAGE [None]
  - RENAL DISORDER [None]
  - RENAL FAILURE [None]
  - RESPIRATORY FAILURE [None]
  - RHEUMATOID ARTHRITIS [None]
  - SEPTIC SHOCK [None]
  - SUICIDAL IDEATION [None]
  - SYSTEMIC LUPUS ERYTHEMATOSUS [None]
  - THROMBOCYTOPENIA [None]
